FAERS Safety Report 23072716 (Version 1)
Quarter: 2023Q4

REPORT INFORMATION
  Report Type: Spontaneous
  Country: US (occurrence: US)
  Receive Date: 20231017
  Receipt Date: 20231017
  Transmission Date: 20240110
  Serious: No
  Sender: FDA-Public Use
  Company Number: US-PADAGIS-2023PAD01435

PATIENT

DRUGS (6)
  1. ESTRADIOL VAGINAL [Suspect]
     Active Substance: ESTRADIOL
     Indication: Atrophy
     Dosage: UNK
     Route: 065
     Dates: start: 20230929
  2. ESTRADIOL VAGINAL [Suspect]
     Active Substance: ESTRADIOL
     Indication: Menopausal symptoms
  3. ESTRACE [Concomitant]
     Active Substance: ESTRADIOL
     Indication: Atrophy
     Dosage: 1 G AT VESTIBULE AND 1 G AT VULVA EVERY DAY IF NEEDED
     Route: 065
  4. ESTRACE [Concomitant]
     Active Substance: ESTRADIOL
     Indication: Menopausal symptoms
     Dosage: 3 G, (INTRAVAGINALLY) QD
     Route: 067
  5. ESTRACE [Concomitant]
     Active Substance: ESTRADIOL
     Dosage: 1.5 G, (INTRAVAGINALLY), THREE TIMES WEEKLY DOSE TAPERED
     Route: 067
  6. ESTRACE [Concomitant]
     Active Substance: ESTRADIOL
     Dosage: 1 G, QD (PESSARY INSERTION)
     Route: 065

REACTIONS (6)
  - Application site erythema [Unknown]
  - Application site dryness [Unknown]
  - Application site pruritus [Unknown]
  - Application site irritation [Unknown]
  - Drug ineffective [Unknown]
  - Incorrect route of product administration [Unknown]

NARRATIVE: CASE EVENT DATE: 20230930
